FAERS Safety Report 4950661-3 (Version None)
Quarter: 2006Q1

REPORT INFORMATION
  Report Type: 
  Country: None (occurrence: None)
  Receive Date: 20060322
  Receipt Date: 20050718
  Transmission Date: 20060701
  Serious: Yes (Other)
  Sender: FDA-Public Use
  Company Number: GB-MERCK-0507GBR00145

PATIENT
  Age: 29 Year
  Sex: Female

DRUGS (1)
  1. PROSCAR [Suspect]
     Indication: MALE PATTERN BALDNESS
     Route: 065

REACTIONS (3)
  - BLIGHTED OVUM [None]
  - DRUG EXPOSURE DURING PREGNANCY [None]
  - TRANSMISSION OF DRUG VIA SEMEN [None]
